FAERS Safety Report 4832831-8 (Version None)
Quarter: 2005Q4

REPORT INFORMATION
  Report Type: 
  Country: None (occurrence: None)
  Receive Date: 20051121
  Receipt Date: 20050901
  Transmission Date: 20060501
  Serious: Yes (Hospitalization)
  Sender: FDA-Public Use
  Company Number: US-MERCK-0509USA00628

PATIENT
  Age: 49 Year
  Sex: Male
  Weight: 99 kg

DRUGS (7)
  1. VIOXX [Suspect]
     Indication: ARTHRITIS
     Route: 048
     Dates: start: 20030326, end: 20030519
  2. VIOXX [Suspect]
     Route: 048
     Dates: start: 20030815, end: 20030901
  3. ALPRAZOLAM [Concomitant]
     Indication: ANXIETY
     Route: 065
  4. ALPRAZOLAM [Concomitant]
     Indication: PANIC DISORDER
     Route: 065
  5. ZOLOFT [Concomitant]
     Indication: DEPRESSION
     Route: 065
  6. ZYPREXA [Concomitant]
     Indication: MENTAL DISORDER
     Route: 065
  7. REMERON [Concomitant]
     Indication: DEPRESSION
     Route: 065

REACTIONS (17)
  - ACUTE MYOCARDIAL INFARCTION [None]
  - BACTERIAL INFECTION [None]
  - CARDIAC FAILURE CONGESTIVE [None]
  - CORONARY ARTERY DISEASE [None]
  - EMPHYSEMA [None]
  - GASTROOESOPHAGEAL REFLUX DISEASE [None]
  - HEADACHE [None]
  - HYPERLIPIDAEMIA [None]
  - HYPERTENSION [None]
  - INFECTION [None]
  - INSOMNIA [None]
  - ISCHAEMIC CARDIOMYOPATHY [None]
  - OEDEMA [None]
  - PNEUMONIA [None]
  - PULMONARY MASS [None]
  - RHINITIS ALLERGIC [None]
  - VENTRICULAR HYPERTROPHY [None]
